FAERS Safety Report 11031790 (Version 1)
Quarter: 2015Q2

REPORT INFORMATION
  Report Type: Spontaneous
  Country: CH (occurrence: None)
  Receive Date: 20150414
  Receipt Date: 20150414
  Transmission Date: 20150821
  Serious: Yes (Other)
  Sender: FDA-Public Use
  Company Number: None

PATIENT
  Sex: Female
  Weight: 26.76 kg

DRUGS (6)
  1. OLMESARTAN [Suspect]
     Active Substance: OLMESARTAN
     Indication: HYPERTENSION
     Dosage: 10MG 20MG ?1 EACH?DAILY?MOUTH
     Route: 048
     Dates: start: 2011, end: 201502
  2. OLMESARTAN [Suspect]
     Active Substance: OLMESARTAN
     Indication: BLOOD CHOLESTEROL INCREASED
     Dosage: 10MG 20MG ?1 EACH?DAILY?MOUTH
     Route: 048
     Dates: start: 2011, end: 201502
  3. ASPIRINE CARDIO [Concomitant]
     Active Substance: ASPIRIN
  4. SIMVASTATIN. [Suspect]
     Active Substance: SIMVASTATIN
  5. OLMESARTAN [Suspect]
     Active Substance: OLMESARTAN
     Indication: CEREBROVASCULAR ACCIDENT PROPHYLAXIS
     Dosage: 10MG 20MG ?1 EACH?DAILY?MOUTH
     Route: 048
     Dates: start: 2011, end: 201502
  6. OLMESARTAN [Suspect]
     Active Substance: OLMESARTAN
     Indication: THROMBOSIS PROPHYLAXIS
     Dosage: 10MG 20MG ?1 EACH?DAILY?MOUTH
     Route: 048
     Dates: start: 2011, end: 201502

REACTIONS (24)
  - Mental impairment [None]
  - Lethargy [None]
  - Muscle disorder [None]
  - Myalgia [None]
  - Food aversion [None]
  - General physical health deterioration [None]
  - Abdominal distension [None]
  - Dry skin [None]
  - Insomnia [None]
  - Asthenia [None]
  - Eczema [None]
  - Depression [None]
  - Amnesia [None]
  - Toxicity to various agents [None]
  - Skin exfoliation [None]
  - No therapeutic response [None]
  - Fear [None]
  - Confusional state [None]
  - Anger [None]
  - Fatigue [None]
  - Feeling abnormal [None]
  - Abasia [None]
  - Pruritus [None]
  - Scratch [None]
